FAERS Safety Report 9010379 (Version 2)
Quarter: 2013Q1

REPORT INFORMATION
  Report Type: Report from Study
  Country: KR (occurrence: KR)
  Receive Date: 20130109
  Receipt Date: 20130114
  Transmission Date: 20140127
  Serious: Yes (Hospitalization)
  Sender: FDA-Public Use
  Company Number: KR-EISAI INC-E7389-03428-CLI-KR

PATIENT
  Age: 48 Year
  Sex: Male
  Weight: 68 kg

DRUGS (2)
  1. E7389 (BOLD) [Suspect]
     Indication: NON-SMALL CELL LUNG CANCER
     Route: 041
     Dates: start: 20120918
  2. E7389 (BOLD) [Suspect]
     Indication: ADENOCARCINOMA

REACTIONS (1)
  - Polydipsia [Not Recovered/Not Resolved]
